FAERS Safety Report 10072352 (Version 1)
Quarter: 2014Q2

REPORT INFORMATION
  Report Type: Spontaneous
  Country: US (occurrence: None)
  Receive Date: 20140409
  Receipt Date: 20140409
  Transmission Date: 20141212
  Serious: Yes (Hospitalization)
  Sender: FDA-Public Use
  Company Number: JK1280

PATIENT
  Age: 44 Year
  Sex: Female

DRUGS (2)
  1. RICOLA HONEY LEMON ECHINACEA [Suspect]
     Indication: COUGH
     Dosage: 1-2 DROPS
  2. RICOLA HONEY LEMON ECHINACEA [Suspect]
     Indication: OROPHARYNGEAL PAIN
     Dosage: 1-2 DROPS

REACTIONS (3)
  - Malaise [None]
  - Headache [None]
  - Haemoglobin decreased [None]
